FAERS Safety Report 25017604 (Version 1)
Quarter: 2025Q1

REPORT INFORMATION
  Report Type: Spontaneous
  Country: NL (occurrence: NL)
  Receive Date: 20250227
  Receipt Date: 20250227
  Transmission Date: 20250409
  Serious: Yes (Other)
  Sender: AUROBINDO
  Company Number: NL-LRB-01032052

PATIENT
  Age: 17 Year
  Sex: Male
  Weight: 63 kg

DRUGS (2)
  1. VALACYCLOVIR HYDROCHLORIDE [Suspect]
     Active Substance: VALACYCLOVIR HYDROCHLORIDE
     Indication: Oral herpes
     Dosage: 2000 MILLIGRAM, TWO TIMES A DAY (4 TABLETS 2 X PER DAY)
     Route: 048
     Dates: start: 20250120
  2. VALACYCLOVIR HYDROCHLORIDE [Suspect]
     Active Substance: VALACYCLOVIR HYDROCHLORIDE
     Indication: Herpes ophthalmic

REACTIONS (3)
  - Hallucination [Recovering/Resolving]
  - Delirium [Recovering/Resolving]
  - Derealisation [Recovering/Resolving]
